FAERS Safety Report 24760070 (Version 1)
Quarter: 2024Q4

REPORT INFORMATION
  Report Type: Spontaneous
  Country: FR (occurrence: FR)
  Receive Date: 20241220
  Receipt Date: 20241220
  Transmission Date: 20250115
  Serious: Yes (Life-Threatening, Hospitalization, Other)
  Sender: HIKMA
  Company Number: FR-HIKMA PHARMACEUTICALS-FR-H14001-24-11603

PATIENT

DRUGS (5)
  1. CARBOPLATIN [Suspect]
     Active Substance: CARBOPLATIN
     Indication: Neoplasm malignant
     Dosage: 480 MILLIGRAM, SINGLE
     Route: 042
     Dates: start: 20240923, end: 20240923
  2. GEMCITABINE [Suspect]
     Active Substance: GEMCITABINE
     Indication: Neoplasm malignant
     Dosage: 1770 MILLIGRAM, SINGLE
     Route: 042
     Dates: start: 20240923, end: 20240923
  3. METHYLPREDNISOLONE [Suspect]
     Active Substance: METHYLPREDNISOLONE
     Indication: Chemotherapy side effect prophylaxis
     Dosage: UNKNOWN
     Route: 065
     Dates: start: 20240923, end: 20240923
  4. ONDANSETRON [Suspect]
     Active Substance: ONDANSETRON
     Indication: Chemotherapy side effect prophylaxis
     Dosage: 8 MILLIGRAM, SINGLE
     Route: 042
     Dates: start: 20240923, end: 20240923
  5. POLARAMINE [Suspect]
     Active Substance: DEXCHLORPHENIRAMINE MALEATE
     Indication: Chemotherapy side effect prophylaxis
     Dosage: 5 MILLIGRAM, SINGLE
     Route: 042
     Dates: start: 20240923, end: 20240923

REACTIONS (1)
  - Anaphylactic shock [Recovered/Resolved]

NARRATIVE: CASE EVENT DATE: 20240923
